FAERS Safety Report 6340693-5 (Version None)
Quarter: 2009Q3

REPORT INFORMATION
  Report Type: 
  Country: None (occurrence: None)
  Receive Date: 20090904
  Receipt Date: 20090826
  Transmission Date: 20100115
  Serious: Yes (Life-Threatening, Hospitalization)
  Sender: FDA-Public Use
  Company Number: JP-TYCO HEALTHCARE/MALLINCKRODT-T200901322

PATIENT
  Age: 79 Year
  Sex: Male
  Weight: 60 kg

DRUGS (4)
  1. OPTIRAY 350 [Suspect]
     Indication: COMPUTERISED TOMOGRAM
     Dosage: 75 ML, SINGLE
     Route: 042
     Dates: start: 20090626, end: 20090626
  2. LEVOTHYROXINE SODIUM [Concomitant]
     Indication: THYROID CANCER
     Dosage: 125 UG, QD
     Route: 048
  3. CANDESARTAN CILEXETIL [Concomitant]
     Indication: HYPERTENSION
     Route: 048
  4. TRIMETAZIDINE HYDROCHLORIDE [Concomitant]
     Indication: HYPERTENSION
     Route: 048

REACTIONS (2)
  - ANAPHYLACTIC SHOCK [None]
  - MALAISE [None]
